FAERS Safety Report 9515112 (Version 1)
Quarter: 2013Q3

REPORT INFORMATION
  Report Type: Spontaneous
  Country: FR (occurrence: None)
  Receive Date: 20130909
  Receipt Date: 20130909
  Transmission Date: 20140515
  Serious: Yes (Death, Hospitalization)
  Sender: FDA-Public Use
  Company Number: DSM-2013-00805

PATIENT
  Age: 90 Year
  Sex: Female

DRUGS (11)
  1. COOLMETIC [Suspect]
     Indication: HYPERTENSION
     Dosage: 20 / 12.5 MG(1 IN 1 D), ORAL?
     Route: 048
     Dates: end: 20120822
  2. PAROXETINE BASE [Suspect]
     Indication: DEPRESSION
     Dosage: 20 MG, (20 MG, 1 IN 1 D), ORAL
     Route: 048
     Dates: start: 20120727, end: 20120822
  3. PREVISCAN (FLUINDIONE) [Concomitant]
  4. STILNOX (ZOLPIDEM) [Concomitant]
  5. TRANSIPEG (MACROGOL) [Concomitant]
  6. SOTALEX (SOTALOL HYDROCHLORIDE) [Concomitant]
  7. SERESTA (OXAZEPAM) [Concomitant]
  8. ALOPLASTINE (GLYCERYL, ZINC OXIDE, TALC) [Concomitant]
  9. PARIET (RABEPRAZOLE SODIUM) [Concomitant]
  10. UVEDOSE (COLECALCIFEROL) (COLECALCIFEROL) [Concomitant]
  11. DEXERYL (GLYCEROL, PARAFFIN, LIQUID, WHITE SOFT PARAFFIN)(GLYCERYL , PARAFFIN, LIQUID, WHITE SOFT PARAFFIN) [Concomitant]

REACTIONS (8)
  - Hyponatraemia [None]
  - Failure to thrive [None]
  - Decreased appetite [None]
  - Apathy [None]
  - Blood potassium decreased [None]
  - Leukocytosis [None]
  - General physical health deterioration [None]
  - Arrhythmia [None]
